FAERS Safety Report 5628189-7 (Version None)
Quarter: 2008Q1

REPORT INFORMATION
  Report Type: 
  Country: None (occurrence: None)
  Receive Date: 20080131
  Receipt Date: 20071121
  Transmission Date: 20080703
  Serious: No
  Sender: FDA-Public Use
  Company Number: 163-21880-07111328

PATIENT
  Age: 57 Year
  Sex: Male

DRUGS (3)
  1. REVLIMID [Suspect]
     Indication: MULTIPLE MYELOMA
     Dosage: 25 MG, DAILY X 28 DAYS, ORAL; 25 MG, 1 IN 1 D, ORAL
     Route: 048
     Dates: start: 20070204, end: 20071031
  2. REVLIMID [Suspect]
     Indication: MULTIPLE MYELOMA
     Dosage: 25 MG, DAILY X 28 DAYS, ORAL; 25 MG, 1 IN 1 D, ORAL
     Route: 048
     Dates: start: 20071107
  3. FLU SHOT (INFLUENZA VACCINE) (INJECTION) [Suspect]
     Indication: PROPHYLAXIS
     Dosage: INTRAMUSCULAR
     Route: 030

REACTIONS (1)
  - INFLUENZA [None]
